FAERS Safety Report 19116887 (Version 1)
Quarter: 2021Q2

REPORT INFORMATION
  Report Type: Spontaneous
  Country: US (occurrence: US)
  Receive Date: 20210409
  Receipt Date: 20210409
  Transmission Date: 20210717
  Serious: No
  Sender: FDA-Public Use
  Company Number: US-ASTRAZENECA-2021A027358

PATIENT
  Sex: Male
  Weight: 82.6 kg

DRUGS (1)
  1. BEVESPI AEROSPHERE [Suspect]
     Active Substance: FORMOTEROL FUMARATE\GLYCOPYRROLATE
     Dosage: 9MCG 4.8MCG PMDI 1 12, 2 PUFFS BID
     Route: 055

REACTIONS (4)
  - Intentional device misuse [Unknown]
  - Product dose omission issue [Unknown]
  - Memory impairment [Unknown]
  - Wrong technique in device usage process [Unknown]
